FAERS Safety Report 4661384-2 (Version None)
Quarter: 2005Q2

REPORT INFORMATION
  Report Type: 
  Country: None (occurrence: None)
  Receive Date: 20050512
  Receipt Date: 20050106
  Transmission Date: 20051028
  Serious: Yes (Death, Hospitalization)
  Sender: FDA-Public Use
  Company Number: 05-05-0780

PATIENT
  Age: 59 Year
  Sex: Female

DRUGS (9)
  1. METRONIDAZOLE [Suspect]
     Indication: ASCITES
     Dosage: 50 MG TDS INTRAVENOUS
     Route: 042
     Dates: start: 20031104, end: 20031106
  2. METRONIDAZOLE [Suspect]
     Indication: SEPSIS
     Dosage: 50 MG TDS INTRAVENOUS
     Route: 042
     Dates: start: 20031104, end: 20031106
  3. CEFOTAXIME [Suspect]
     Indication: ASCITES
     Dosage: 50MG BD INTRAVENOUS
     Route: 042
     Dates: start: 20031104, end: 20031111
  4. CEFOTAXIME [Suspect]
     Indication: SEPSIS
     Dosage: 50MG BD INTRAVENOUS
     Route: 042
     Dates: start: 20031104, end: 20031111
  5. CHLORDIAZEPOXIDE [Concomitant]
  6. FOLIC ACID [Concomitant]
  7. THIAMINE [Concomitant]
  8. LANZOPRAZOLE [Concomitant]
  9. SPIRONOLACTONE [Concomitant]

REACTIONS (1)
  - CLOSTRIDIUM COLITIS [None]
